FAERS Safety Report 6426450-X (Version None)
Quarter: 2009Q4

REPORT INFORMATION
  Report Type: 
  Country: None (occurrence: None)
  Receive Date: 20091104
  Receipt Date: 20091022
  Transmission Date: 20100525
  Serious: Yes (Other)
  Sender: FDA-Public Use
  Company Number: PHEH2009US14348

PATIENT
  Sex: Female

DRUGS (1)
  1. EXJADE [Suspect]
     Dosage: 1375 (UNITS NOT PROVIDED) DAILY
     Route: 048
     Dates: start: 20070131, end: 20091002

REACTIONS (1)
  - VISION BLURRED [None]
